FAERS Safety Report 13970583 (Version 3)
Quarter: 2021Q1

REPORT INFORMATION
  Report Type: Report from Study
  Country: US (occurrence: US)
  Receive Date: 20170914
  Receipt Date: 20210326
  Transmission Date: 20210419
  Serious: Yes (Hospitalization, Other)
  Sender: FDA-Public Use
  Company Number: US-ASTELLAS-2016US040365

PATIENT
  Age: 73 Year
  Sex: Male

DRUGS (56)
  1. ENZALUTAMIDE [Suspect]
     Active Substance: ENZALUTAMIDE
     Indication: HORMONE-REFRACTORY PROSTATE CANCER
     Dosage: 160 MG, ONCE DAILY (AT BEDTIME)
     Route: 048
     Dates: start: 20160719
  2. DEGARELIX [Concomitant]
     Active Substance: DEGARELIX
     Dosage: UNK UNK, UNKNOWN FREQ.
     Route: 065
     Dates: start: 20170505, end: 20170630
  3. DEGARELIX [Concomitant]
     Active Substance: DEGARELIX
     Dosage: UNK UNK, UNKNOWN FREQ.
     Route: 065
     Dates: start: 20171208, end: 20180508
  4. CRESTOR [Concomitant]
     Active Substance: ROSUVASTATIN CALCIUM
     Indication: PRODUCT USED FOR UNKNOWN INDICATION
     Dosage: UNK UNK, UNKNOWN FREQ.
     Route: 065
     Dates: start: 20161011
  5. METFORMIN [Concomitant]
     Active Substance: METFORMIN HYDROCHLORIDE
     Dosage: UNK UNK, UNKNOWN FREQ.
     Route: 065
     Dates: start: 20170528, end: 20171124
  6. VITAMIN B12 [Concomitant]
     Active Substance: CYANOCOBALAMIN
     Indication: PRODUCT USED FOR UNKNOWN INDICATION
     Dosage: UNK UNK, UNKNOWN FREQ.
     Route: 065
     Dates: start: 20161011
  7. CABERGOLINE. [Concomitant]
     Active Substance: CABERGOLINE
     Dosage: UNK UNK, UNKNOWN FREQ.
     Route: 065
     Dates: start: 20180309, end: 20180508
  8. CABERGOLINE. [Concomitant]
     Active Substance: CABERGOLINE
     Dosage: UNK UNK, UNKNOWN FREQ.
     Route: 065
     Dates: start: 20170531, end: 20180216
  9. DUTASTERIDE. [Concomitant]
     Active Substance: DUTASTERIDE
     Dosage: UNK UNK, UNKNOWN FREQ.
     Route: 065
     Dates: start: 20180507, end: 20181103
  10. ROSUVASTATIN. [Concomitant]
     Active Substance: ROSUVASTATIN
     Route: 065
     Dates: start: 20180331
  11. RISPERIDONE. [Concomitant]
     Active Substance: RISPERIDONE
     Indication: PRODUCT USED FOR UNKNOWN INDICATION
     Dosage: UNK UNK, UNKNOWN FREQ.
     Route: 065
     Dates: start: 20171118, end: 20171118
  12. DEGARELIX [Concomitant]
     Active Substance: DEGARELIX
     Route: 065
  13. VITAMIN D3 [Concomitant]
     Active Substance: CHOLECALCIFEROL
     Indication: PRODUCT USED FOR UNKNOWN INDICATION
     Route: 065
     Dates: start: 20160715
  14. LEVOTHYROXIN [Concomitant]
     Active Substance: LEVOTHYROXINE
     Route: 065
     Dates: start: 20170826
  15. VITAMIN B12 [Concomitant]
     Active Substance: CYANOCOBALAMIN
     Route: 065
     Dates: start: 20171116
  16. CABERGOLINE. [Concomitant]
     Active Substance: CABERGOLINE
     Dosage: UNK UNK, UNKNOWN FREQ.
     Route: 065
     Dates: start: 20171130
  17. VIVELLE?DOT [Concomitant]
     Active Substance: ESTRADIOL
     Dosage: UNK UNK, UNKNOWN FREQ.
     Route: 065
     Dates: start: 20170820, end: 20171016
  18. ESTRADIOL. [Concomitant]
     Active Substance: ESTRADIOL
     Dosage: 0.025 MG, UNKNOWN FREQ.
     Route: 065
     Dates: end: 20180102
  19. ENZALUTAMIDE [Suspect]
     Active Substance: ENZALUTAMIDE
     Route: 048
  20. DEGARELIX [Concomitant]
     Active Substance: DEGARELIX
     Dosage: UNK UNK, UNKNOWN FREQ.
     Route: 065
     Dates: start: 20170512, end: 20180113
  21. LISINOPRIL. [Concomitant]
     Active Substance: LISINOPRIL
     Indication: PRODUCT USED FOR UNKNOWN INDICATION
     Dosage: UNK UNK, UNKNOWN FREQ.
     Route: 065
     Dates: start: 20180222, end: 20180527
  22. LISINOPRIL. [Concomitant]
     Active Substance: LISINOPRIL
     Route: 065
     Dates: start: 20180423
  23. METFORMIN [Concomitant]
     Active Substance: METFORMIN HYDROCHLORIDE
     Indication: PRODUCT USED FOR UNKNOWN INDICATION
     Dosage: UNK UNK, UNKNOWN FREQ.
     Route: 065
     Dates: start: 20161011
  24. METFORMIN [Concomitant]
     Active Substance: METFORMIN HYDROCHLORIDE
     Dosage: UNK UNK, UNKNOWN FREQ.
     Route: 065
     Dates: start: 20170527, end: 20180222
  25. CABERGOLINE. [Concomitant]
     Active Substance: CABERGOLINE
     Indication: PRODUCT USED FOR UNKNOWN INDICATION
     Dosage: UNK UNK, UNKNOWN FREQ.
     Route: 065
     Dates: start: 20161011
  26. VIVELLE?DOT [Concomitant]
     Active Substance: ESTRADIOL
     Indication: PRODUCT USED FOR UNKNOWN INDICATION
     Dosage: UNK, UNKNOWN FREQ.
     Route: 065
     Dates: start: 20161011
  27. DEGARELIX [Concomitant]
     Active Substance: DEGARELIX
     Dosage: UNK UNK, UNKNOWN FREQ.
     Route: 065
     Dates: start: 20170401, end: 20170601
  28. LEVOTHYROXIN [Concomitant]
     Active Substance: LEVOTHYROXINE
     Indication: PRODUCT USED FOR UNKNOWN INDICATION
     Dosage: UNK UNK, UNKNOWN FREQ.
     Route: 065
     Dates: start: 20170926
  29. VITAMIN B12 [Concomitant]
     Active Substance: CYANOCOBALAMIN
     Dosage: UNK UNK, UNKNOWN FREQ.
     Route: 065
     Dates: start: 20171118
  30. DUTASTERIDE. [Concomitant]
     Active Substance: DUTASTERIDE
     Indication: PRODUCT USED FOR UNKNOWN INDICATION
     Dosage: UNK, UNKNOWN FREQ.
     Route: 065
     Dates: start: 20170407, end: 20180328
  31. ROSUVASTATIN. [Concomitant]
     Active Substance: ROSUVASTATIN
     Indication: PRODUCT USED FOR UNKNOWN INDICATION
     Dosage: UNK UNK, UNKNOWN FREQ.
     Route: 065
     Dates: start: 20170227, end: 20170325
  32. ROSUVASTATIN. [Concomitant]
     Active Substance: ROSUVASTATIN
     Route: 065
     Dates: start: 20180325
  33. COENZYME Q10 [Concomitant]
     Active Substance: DIETARY SUPPLEMENT\UBIDECARENONE
     Indication: PRODUCT USED FOR UNKNOWN INDICATION
     Dosage: UNK UNK, UNKNOWN FREQ.
     Route: 065
     Dates: start: 20171116
  34. FISH OIL [Concomitant]
     Active Substance: FISH OIL
     Indication: PRODUCT USED FOR UNKNOWN INDICATION
     Dosage: UNK UNK, UNKNOWN FREQ.
     Route: 065
     Dates: start: 20180715
  35. VITAMIN D [ERGOCALCIFEROL] [Concomitant]
     Active Substance: ERGOCALCIFEROL
     Indication: PRODUCT USED FOR UNKNOWN INDICATION
     Dosage: UNK UNK, UNKNOWN FREQ.
     Route: 065
     Dates: start: 20160715, end: 20170120
  36. CABERGOLINE. [Concomitant]
     Active Substance: CABERGOLINE
     Dosage: UNK UNK, UNKNOWN FREQ.
     Route: 065
     Dates: start: 20180314, end: 20180513
  37. ROSUVASTATIN. [Concomitant]
     Active Substance: ROSUVASTATIN
     Dosage: UNK, UNKNOWN FREQ.
     Route: 065
     Dates: start: 20171229, end: 20180325
  38. VIVELLE?DOT [Concomitant]
     Active Substance: ESTRADIOL
     Dosage: UNK, UNKNOWN FREQ.
     Route: 065
     Dates: start: 20170718, end: 20170812
  39. ENZALUTAMIDE [Suspect]
     Active Substance: ENZALUTAMIDE
     Dosage: UNK UNK, UNKNOWN FREQ.
     Route: 065
     Dates: start: 20200219
  40. AVODART [Concomitant]
     Active Substance: DUTASTERIDE
     Indication: PRODUCT USED FOR UNKNOWN INDICATION
     Dosage: UNK UNK, UNKNOWN FREQ.
     Route: 065
     Dates: start: 20161011
  41. METFORMIN [Concomitant]
     Active Substance: METFORMIN HYDROCHLORIDE
     Dosage: UNK UNK, UNKNOWN FREQ.
     Route: 065
     Dates: start: 20170528, end: 20171124
  42. DUTASTERIDE. [Concomitant]
     Active Substance: DUTASTERIDE
     Dosage: UNK UNK, UNKNOWN FREQ.
     Route: 065
     Dates: start: 20180403, end: 20180830
  43. ESTRADIOL. [Concomitant]
     Active Substance: ESTRADIOL
     Indication: PRODUCT USED FOR UNKNOWN INDICATION
     Dosage: 0.05 MG, UNKNOWN FREQ.
     Route: 065
     Dates: start: 20171114
  44. DEGARELIX [Concomitant]
     Active Substance: DEGARELIX
     Dosage: UNK UNK, UNKNOWN FREQ.
     Route: 065
     Dates: start: 20171207, end: 20180205
  45. DEGARELIX [Concomitant]
     Active Substance: DEGARELIX
     Route: 065
     Dates: start: 20180713
  46. LEVOTHYROXIN [Concomitant]
     Active Substance: LEVOTHYROXINE
     Route: 065
     Dates: start: 20161011
  47. LEVOTHYROXIN [Concomitant]
     Active Substance: LEVOTHYROXINE
     Route: 065
     Dates: end: 20180108
  48. VITAMIN B12 [Concomitant]
     Active Substance: CYANOCOBALAMIN
     Route: 065
     Dates: start: 20161011
  49. VIVELLE?DOT [Concomitant]
     Active Substance: ESTRADIOL
     Dosage: UNK, UNKNOWN FREQ.
     Route: 065
     Dates: start: 20170823, end: 20180205
  50. DEGARELIX [Concomitant]
     Active Substance: DEGARELIX
     Indication: PRODUCT USED FOR UNKNOWN INDICATION
     Dosage: UNK UNK, UNKNOWN FREQ.
     Route: 065
     Dates: start: 20170411, end: 20170607
  51. DEGARELIX [Concomitant]
     Active Substance: DEGARELIX
     Route: 065
     Dates: start: 20171208
  52. METFORMIN [Concomitant]
     Active Substance: METFORMIN HYDROCHLORIDE
     Dosage: UNK UNK, UNKNOWN FREQ.
     Route: 065
     Dates: start: 20171122, end: 20180521
  53. DUTASTERIDE. [Concomitant]
     Active Substance: DUTASTERIDE
     Dosage: UNK, UNKNOWN FREQ.
     Route: 065
     Dates: start: 20171228
  54. POMEGRANATE [PUNICA GRANATUM] [Concomitant]
     Indication: PRODUCT USED FOR UNKNOWN INDICATION
     Dosage: UNK UNK, UNKNOWN FREQ.
     Route: 065
  55. VIVELLE?DOT [Concomitant]
     Active Substance: ESTRADIOL
     Dosage: UNK, UNKNOWN FREQ.
     Route: 065
     Dates: start: 20170718, end: 20170912
  56. VIVELLE?DOT [Concomitant]
     Active Substance: ESTRADIOL
     Dosage: UNK, UNKNOWN FREQ.
     Route: 065
     Dates: start: 20170621, end: 20180206

REACTIONS (12)
  - Dry mouth [Unknown]
  - Hypoaesthesia [Not Recovered/Not Resolved]
  - Seizure [Unknown]
  - Product physical issue [Unknown]
  - Aphasia [Unknown]
  - Speech disorder [Unknown]
  - Fatigue [Recovering/Resolving]
  - Decreased appetite [Not Recovered/Not Resolved]
  - Balance disorder [Recovering/Resolving]
  - Constipation [Not Recovered/Not Resolved]
  - Taste disorder [Not Recovered/Not Resolved]
  - Confusional state [Unknown]

NARRATIVE: CASE EVENT DATE: 20210303
